FAERS Safety Report 5023991-7 (Version None)
Quarter: 2006Q2

REPORT INFORMATION
  Report Type: 
  Country: None (occurrence: None)
  Receive Date: 20060607
  Receipt Date: 20060525
  Transmission Date: 20061013
  Serious: Yes (Death, Hospitalization)
  Sender: FDA-Public Use
  Company Number: US200511001402

PATIENT
  Age: 40 Year
  Sex: Female
  Weight: 93.4 kg

DRUGS (2)
  1. ZYPREXA [Suspect]
     Dates: start: 19950101, end: 20040201
  2. SEROQUEL [Concomitant]

REACTIONS (10)
  - BLOOD CHOLESTEROL ABNORMAL [None]
  - CATHETER PLACEMENT [None]
  - COMA [None]
  - DIABETES MELLITUS [None]
  - DIABETIC COMA [None]
  - HUNGER [None]
  - OBESITY [None]
  - PHARMACEUTICAL PRODUCT COMPLAINT [None]
  - THYROID DISORDER [None]
  - WEIGHT DECREASED [None]
